FAERS Safety Report 20035300 (Version 1)
Quarter: 2021Q4

REPORT INFORMATION
  Report Type: Report from Study
  Country: FR (occurrence: FR)
  Receive Date: 20211104
  Receipt Date: 20211104
  Transmission Date: 20220303
  Serious: Yes (Hospitalization)
  Sender: FDA-Public Use
  Company Number: FR-PFIZER INC-202101429347

PATIENT
  Age: 65 Year
  Sex: Female
  Weight: 68 kg

DRUGS (24)
  1. INOTUZUMAB OZOGAMICIN [Suspect]
     Active Substance: INOTUZUMAB OZOGAMICIN
     Dosage: 1.37 MG, SINGLE (INDUCTION 1, DAY1)
     Dates: start: 20210421, end: 20210421
  2. INOTUZUMAB OZOGAMICIN [Suspect]
     Active Substance: INOTUZUMAB OZOGAMICIN
     Dosage: 1.37 MG, SINGLE , (INDUCTION 1, DAY8)
     Dates: start: 20210428, end: 20210428
  3. INOTUZUMAB OZOGAMICIN [Suspect]
     Active Substance: INOTUZUMAB OZOGAMICIN
     Dosage: 1.37 MG, SINGLE , (INDUCTION 1, DAY15)
     Dates: start: 20210505, end: 20210505
  4. INOTUZUMAB OZOGAMICIN [Suspect]
     Active Substance: INOTUZUMAB OZOGAMICIN
     Dosage: 0.87 MG, SINGLE (INDUCTION 2, DAY 1)
     Dates: start: 20210520, end: 20210520
  5. INOTUZUMAB OZOGAMICIN [Suspect]
     Active Substance: INOTUZUMAB OZOGAMICIN
     Dosage: 0.87 MG, SINGLE (INDUCTION 2, DAY 1)
     Dates: start: 20210527, end: 20210527
  6. CYTARABINE [Suspect]
     Active Substance: CYTARABINE
     Dosage: 40 MG, SINGLE (INDUCTION 1, DAY 2)
     Dates: start: 20210422, end: 20210422
  7. CYTARABINE [Suspect]
     Active Substance: CYTARABINE
     Dosage: 40 MG, SINGLE (INDUCTION 2, DAY 2)
     Dates: start: 20210521, end: 20210521
  8. VINCRISTINE SULFATE [Suspect]
     Active Substance: VINCRISTINE SULFATE
     Dosage: 2 MG, SINGLE (INDUCTION 1, DAY1)
     Dates: start: 20210424, end: 20210424
  9. VINCRISTINE SULFATE [Suspect]
     Active Substance: VINCRISTINE SULFATE
     Dosage: 2 MG, SINGLE (INDUCTION 1, DAY8)
     Dates: start: 20210428, end: 20210428
  10. VINCRISTINE SULFATE [Suspect]
     Active Substance: VINCRISTINE SULFATE
     Dosage: 2 MG, SINGLE (INDUCTION 1, DAY15)
     Dates: start: 20210505, end: 20210505
  11. VINCRISTINE SULFATE [Suspect]
     Active Substance: VINCRISTINE SULFATE
     Dosage: 2 MG, SINGLE (INDUCTION 1, DAY22)
     Dates: start: 20210512, end: 20210512
  12. METHOTREXATE [Suspect]
     Active Substance: METHOTREXATE
     Dosage: 15 MG, SINGLE (INDUCTION 1, DAY2)
     Route: 037
     Dates: start: 20210422, end: 20210422
  13. CYCLOPHOSPHAMIDE [Suspect]
     Active Substance: CYCLOPHOSPHAMIDE
     Dosage: 51 MG, SINGLE (INDUCTION 2, DAY 1)
     Dates: start: 20210520, end: 20210520
  14. CYCLOPHOSPHAMIDE [Suspect]
     Active Substance: CYCLOPHOSPHAMIDE
     Dosage: 51 MG, SINGLE (INDUCTION 2, DAY 2)
     Dates: start: 20210521, end: 20210521
  15. CYCLOPHOSPHAMIDE [Suspect]
     Active Substance: CYCLOPHOSPHAMIDE
     Dosage: 51 MG, SINGLE (INDUCTION 2, DAY 3)
     Dates: start: 20210522, end: 20210522
  16. EXJADE [Concomitant]
     Active Substance: DEFERASIROX
     Indication: Iron overload
     Dosage: 360 MG, 2X/DAY
     Route: 048
     Dates: start: 20210831, end: 20210923
  17. VALACYCLOVIR HYDROCHLORIDE [Concomitant]
     Active Substance: VALACYCLOVIR HYDROCHLORIDE
     Indication: Antiviral prophylaxis
     Dosage: 500 MG, 1X/DAY
     Route: 048
     Dates: start: 20210414
  18. ATOVAQUONE [Concomitant]
     Active Substance: ATOVAQUONE
     Indication: Infection prophylaxis
     Dosage: 750 MG, 2X/DAY
     Route: 048
     Dates: start: 20210608
  19. ESCITALOPRAM [Concomitant]
     Active Substance: ESCITALOPRAM OXALATE
     Indication: Anxiety
     Dosage: 10 MG, 1X/DAY
     Route: 048
  20. OXAZEPAM [Concomitant]
     Active Substance: OXAZEPAM
     Indication: Anxiety
     Dosage: 10 MG, DAILY
     Route: 048
     Dates: start: 20210422
  21. SMECTA [Concomitant]
     Active Substance: MONTMORILLONITE
     Dosage: UNK
  22. RACECADOTRIL [Concomitant]
     Active Substance: RACECADOTRIL
     Dosage: UNK
  23. MOVICOL [Concomitant]
     Active Substance: POLYETHYLENE GLYCOL 3350\POTASSIUM CHLORIDE\SODIUM BICARBONATE\SODIUM CHLORIDE
     Dosage: UNK
  24. FILGRASTIM [Concomitant]
     Active Substance: FILGRASTIM
     Dosage: UNK

REACTIONS (3)
  - Febrile bone marrow aplasia [Recovered/Resolved]
  - Staphylococcal infection [Recovered/Resolved]
  - Device related infection [Recovered/Resolved]

NARRATIVE: CASE EVENT DATE: 20210923
